FAERS Safety Report 17135887 (Version 1)
Quarter: 2019Q4

REPORT INFORMATION
  Report Type: Spontaneous
  Country: US (occurrence: US)
  Receive Date: 20191210
  Receipt Date: 20191210
  Transmission Date: 20200122
  Serious: No
  Sender: FDA-Public Use
  Company Number: US-OSMOTICA_PHARMACEUTICAL_US_LLC-POI0573201900402

PATIENT
  Age: 14 Year
  Sex: Male

DRUGS (3)
  1. OSMOLEX ER [Suspect]
     Active Substance: AMANTADINE
     Indication: ATTENTION DEFICIT/HYPERACTIVITY DISORDER
     Dates: start: 20190529, end: 20190618
  2. OSMOLEX ER [Suspect]
     Active Substance: AMANTADINE
     Indication: IMPULSE-CONTROL DISORDER
     Dates: start: 20190619
  3. OSMOLEX ER [Suspect]
     Active Substance: AMANTADINE
     Indication: MENTAL DISORDER
     Dates: start: 20190619

REACTIONS (2)
  - Off label use [Not Recovered/Not Resolved]
  - Product use issue [Not Recovered/Not Resolved]

NARRATIVE: CASE EVENT DATE: 20190529
